FAERS Safety Report 4515050-4 (Version None)
Quarter: 2004Q4

REPORT INFORMATION
  Report Type: 
  Country: None (occurrence: None)
  Receive Date: 20041129
  Receipt Date: 20041129
  Transmission Date: 20050328
  Serious: No
  Sender: FDA-Public Use
  Company Number: None

PATIENT
  Age: 76 Year
  Sex: Female
  Weight: 68.0396 kg

DRUGS (4)
  1. SEREVENT [Suspect]
     Dosage: 2 PUFFS INHALOR
  2. PREDNISONE [Concomitant]
  3. ALBUTEROL SULFATE [Concomitant]
  4. IPATROPIUM BROMIDE [Concomitant]

REACTIONS (3)
  - ASTHMA [None]
  - CONDITION AGGRAVATED [None]
  - MALAISE [None]
